FAERS Safety Report 19193986 (Version 1)
Quarter: 2021Q2

REPORT INFORMATION
  Report Type: Other
  Country: US (occurrence: US)
  Receive Date: 20210429
  Receipt Date: 20210429
  Transmission Date: 20210717
  Serious: Yes (Other)
  Sender: FDA-Public Use
  Company Number: US-ROCHE-2759228

PATIENT
  Sex: Female

DRUGS (10)
  1. ONDANSETRON HCL [Concomitant]
     Active Substance: ONDANSETRON HYDROCHLORIDE
     Dosage: 1 EVERY 6 HOURS AS NEEDED
  2. XELODA [Suspect]
     Active Substance: CAPECITABINE
     Indication: BREAST CANCER FEMALE
     Dosage: TAKE 4 TABLETS (2000 MG) BY MOUTH IN THE MORNING AND 3 TABLETS (1500 MG) BY MOUTH IN THE EVENING FOR
     Route: 048
  3. ZYRTEC (UNITED STATES) [Concomitant]
  4. NORVASC [Concomitant]
     Active Substance: AMLODIPINE BESYLATE
     Route: 048
  5. EPIPEN [Concomitant]
     Active Substance: EPINEPHRINE
     Dosage: 0.3 MG/0.3 ML, AS DIRECTED
  6. XELODA [Suspect]
     Active Substance: CAPECITABINE
     Dosage: FOR 14 DAYS OF A 21 DAY CYCLE
     Route: 048
  7. CARVEDILOL. [Concomitant]
     Active Substance: CARVEDILOL
  8. LEVOTHYROXINE. [Concomitant]
     Active Substance: LEVOTHYROXINE
     Route: 048
  9. LIDOCAINE;PRILOCAINE [Concomitant]
     Dosage: FORM STRENGTH: 2.5%?2.5%?APPLY TO PORT SITE AT LEAST ONE HOUR PRIOR TO TREATMENT. COVER WITH OCCLUSI
     Route: 061
  10. MILK THISTLE [Concomitant]
     Active Substance: DIETARY SUPPLEMENT\HERBALS\MILK THISTLE
     Route: 048

REACTIONS (11)
  - Hepatic cancer [Unknown]
  - Nail disorder [Unknown]
  - Muscle atrophy [Unknown]
  - Skin exfoliation [Unknown]
  - Blister [Unknown]
  - Dry skin [Unknown]
  - Diarrhoea [Unknown]
  - Alopecia [Unknown]
  - Obsessive-compulsive disorder [Unknown]
  - Urinary tract infection [Unknown]
  - Hepatic cancer metastatic [Unknown]
